FAERS Safety Report 12941660 (Version 1)
Quarter: 2016Q4

REPORT INFORMATION
  Report Type: Report from Study
  Country: US (occurrence: US)
  Receive Date: 20161115
  Receipt Date: 20161115
  Transmission Date: 20170207
  Serious: Yes (Other)
  Sender: FDA-Public Use
  Company Number: US-ROCHE-1853675

PATIENT

DRUGS (3)
  1. ACETAMINOPHEN. [Concomitant]
     Active Substance: ACETAMINOPHEN
  2. RITUXIMAB [Suspect]
     Active Substance: RITUXIMAB
     Indication: CHRONIC LYMPHOCYTIC LEUKAEMIA
     Route: 042
  3. DIPHENHYDRAMINE. [Concomitant]
     Active Substance: DIPHENHYDRAMINE

REACTIONS (11)
  - Pyrexia [Unknown]
  - Pain [Unknown]
  - Headache [Unknown]
  - White blood cell count increased [Unknown]
  - Hypertension [Unknown]
  - Chills [Unknown]
  - Hypotension [Unknown]
  - Paraesthesia [Unknown]
  - Nausea [Unknown]
  - Muscle spasms [Unknown]
  - Dyspnoea [Unknown]
